FAERS Safety Report 6266919-4 (Version None)
Quarter: 2009Q3

REPORT INFORMATION
  Report Type: 
  Country: None (occurrence: None)
  Receive Date: 20090714
  Receipt Date: 20090703
  Transmission Date: 20100115
  Serious: Yes (Other)
  Sender: FDA-Public Use
  Company Number: PHHY2009GB27640

PATIENT
  Age: 4 Year

DRUGS (1)
  1. NEORAL [Suspect]
     Dosage: 60 MG, BID

REACTIONS (2)
  - EYELID PTOSIS [None]
  - PETIT MAL EPILEPSY [None]
